FAERS Safety Report 4462082-0 (Version None)
Quarter: 2004Q3

REPORT INFORMATION
  Report Type: 
  Country: None (occurrence: None)
  Receive Date: 20040924
  Receipt Date: 20040914
  Transmission Date: 20050211
  Serious: Yes (Other)
  Sender: FDA-Public Use
  Company Number: CHPA2004US03260

PATIENT
  Age: 68 Year
  Sex: Female
  Weight: 59.9 kg

DRUGS (6)
  1. TRANSDERM SCOP (NCH) (HYOSCIAMINE HYDROBROMIDE) TRANS-THERAPEUTIC SYST [Suspect]
     Indication: MOTION SICKNESS
     Dosage: TRANSDERMAL
     Route: 062
  2. CALCIUM [Concomitant]
  3. VITAMIN E [Concomitant]
  4. MULTIVITAMINS (PANTHENOL, RETINOL) [Concomitant]
  5. PLAVIX [Concomitant]
  6. ACCUPRIL [Concomitant]

REACTIONS (12)
  - CEREBROVASCULAR ACCIDENT [None]
  - CONFUSIONAL STATE [None]
  - DISORIENTATION [None]
  - DIZZINESS [None]
  - EYE DISORDER [None]
  - EYELID FUNCTION DISORDER [None]
  - HALLUCINATION [None]
  - HYPERTENSION [None]
  - NAUSEA [None]
  - POISONING [None]
  - SOMNOLENCE [None]
  - TREMOR [None]
